FAERS Safety Report 15759533 (Version 1)
Quarter: 2018Q4

REPORT INFORMATION
  Report Type: Spontaneous
  Country: US (occurrence: US)
  Receive Date: 20181226
  Receipt Date: 20181226
  Transmission Date: 20190205
  Serious: No
  Sender: FDA-Public Use
  Company Number: US-CIPLA LTD.-2018US20495

PATIENT

DRUGS (2)
  1. RIZATRIPTAN. [Suspect]
     Active Substance: RIZATRIPTAN
     Indication: MIGRAINE
     Dosage: UNK, BRAND MAXALT
     Route: 065
  2. RIZATRIPTAN. [Suspect]
     Active Substance: RIZATRIPTAN
     Dosage: UNK, (CIPLA GENERIC)
     Route: 065

REACTIONS (6)
  - Muscle fatigue [Unknown]
  - Mental impairment [Unknown]
  - Anxiety [Unknown]
  - Drug ineffective [Unknown]
  - Product substitution issue [Unknown]
  - Fatigue [Unknown]
